FAERS Safety Report 7811069-6 (Version None)
Quarter: 2011Q4

REPORT INFORMATION
  Report Type: 
  Country: None (occurrence: None)
  Receive Date: 20111013
  Receipt Date: 20111006
  Transmission Date: 20120403
  Serious: Yes (Death, Hospitalization)
  Sender: FDA-Public Use
  Company Number: US-CELGENEUS-163-21880-11071899

PATIENT
  Sex: Male
  Weight: 110.9 kg

DRUGS (10)
  1. HYDROCODONE BITARTRATE [Concomitant]
     Dosage: 5
     Route: 065
  2. NEXIUM [Concomitant]
     Dosage: 40
     Route: 065
  3. ALDACTONE [Concomitant]
     Dosage: 25
     Route: 065
  4. VICODIN [Concomitant]
     Route: 065
  5. ADVAIR DISKUS 100/50 [Concomitant]
     Route: 065
  6. SPIRIVA [Concomitant]
     Route: 055
  7. ALFUZOSIN HCL [Concomitant]
     Dosage: 10
     Route: 065
  8. REVLIMID [Suspect]
     Dosage: 10 MILLIGRAM
     Route: 048
     Dates: start: 20110111, end: 20110407
  9. VIDAZA [Suspect]
     Dosage: 75 MILLIGRAM/SQ. METER
     Route: 058
     Dates: start: 20110111, end: 20110407
  10. THEOPHYLLINE [Concomitant]
     Dosage: 600
     Route: 065

REACTIONS (5)
  - CARDIAC ARREST [None]
  - RESPIRATORY FAILURE [None]
  - PULMONARY EMBOLISM [None]
  - HYPOXIC-ISCHAEMIC ENCEPHALOPATHY [None]
  - DEEP VEIN THROMBOSIS [None]
